FAERS Safety Report 5455770-0 (Version None)
Quarter: 2007Q3

REPORT INFORMATION
  Report Type: 
  Country: None (occurrence: None)
  Receive Date: 20070918
  Receipt Date: 20070330
  Transmission Date: 20080115
  Serious: Yes (Other)
  Sender: FDA-Public Use
  Company Number: US-ASTRAZENECA-2006UW22633

PATIENT
  Sex: Male
  Weight: 125.5 kg

DRUGS (3)
  1. SEROQUEL [Suspect]
     Indication: SLEEP DISORDER
     Route: 048
     Dates: start: 20050101, end: 20060801
  2. SEROQUEL [Suspect]
     Indication: DEPRESSION
     Route: 048
     Dates: start: 20050101, end: 20060801
  3. PSYCHIATRIC MEDICATION (UNSPECIFIED) [Concomitant]

REACTIONS (2)
  - TARDIVE DYSKINESIA [None]
  - TYPE 2 DIABETES MELLITUS [None]
